FAERS Safety Report 6045745-5 (Version None)
Quarter: 2009Q1

REPORT INFORMATION
  Report Type: 
  Country: None (occurrence: None)
  Receive Date: 20090121
  Receipt Date: 20090112
  Transmission Date: 20090719
  Serious: Yes (Other)
  Sender: FDA-Public Use
  Company Number: GB-PFIZER INC-2009154671

PATIENT
  Age: 43 Year
  Sex: Male

DRUGS (3)
  1. FLUCONAZOLE [Suspect]
     Route: 042
  2. SIMVASTATIN [Interacting]
  3. COTRIM [Concomitant]

REACTIONS (3)
  - DRUG INTERACTION [None]
  - RENAL FAILURE ACUTE [None]
  - RHABDOMYOLYSIS [None]
